FAERS Safety Report 12407533 (Version 1)
Quarter: 2016Q2

REPORT INFORMATION
  Report Type: Report from Study
  Country: US (occurrence: US)
  Receive Date: 20160526
  Receipt Date: 20160526
  Transmission Date: 20160815
  Serious: Yes (Other)
  Sender: FDA-Public Use
  Company Number: PHHO2016US007544

PATIENT
  Age: 66 Year
  Sex: Female
  Weight: 92 kg

DRUGS (5)
  1. GW572016 [Suspect]
     Active Substance: LAPATINIB
     Dosage: UNK
     Route: 048
     Dates: start: 20150526
  2. GW572016 [Suspect]
     Active Substance: LAPATINIB
     Dosage: UNK (DOSE REDUCED)
     Route: 048
  3. GW572016 [Suspect]
     Active Substance: LAPATINIB
     Indication: BREAST CANCER
     Dosage: 1500 MG, QD
     Route: 048
     Dates: start: 20100501, end: 20100701
  4. PACLITAXEL. [Suspect]
     Active Substance: PACLITAXEL
     Indication: BREAST CANCER
     Dosage: 2160 MG (80 MG/M2), QW (Q7 DAYS), TOTAL 12 DOSES
     Route: 042
     Dates: start: 20100510, end: 20100726
  5. PACLITAXEL. [Suspect]
     Active Substance: PACLITAXEL
     Dosage: UNK
     Route: 042
     Dates: start: 20150526

REACTIONS (1)
  - Breast cancer [Recovering/Resolving]

NARRATIVE: CASE EVENT DATE: 20150526
